FAERS Safety Report 6565569-X (Version None)
Quarter: 2010Q2

REPORT INFORMATION
  Report Type: 
  Country: None (occurrence: None)
  Receive Date: 20100201
  Receipt Date: 20100121
  Transmission Date: 20101027
  Serious: Yes (Other)
  Sender: FDA-Public Use
  Company Number: US-JNJFOC-20100109704

PATIENT
  Sex: Female

DRUGS (2)
  1. CONCENTRATED TYLENOL INFANT DROPS [Suspect]
     Route: 065
  2. CONCENTRATED TYLENOL INFANT DROPS [Suspect]
     Indication: MALAISE
     Route: 065

REACTIONS (2)
  - PNEUMONIA [None]
  - TRANSMISSION OF AN INFECTIOUS AGENT VIA A MEDICINAL PRODUCT [None]
